FAERS Safety Report 16106449 (Version 1)
Quarter: 2019Q1

REPORT INFORMATION
  Report Type: Other
  Country: ES (occurrence: ES)
  Receive Date: 20190322
  Receipt Date: 20190322
  Transmission Date: 20190418
  Serious: Yes (Other)
  Sender: FDA-Public Use
  Company Number: ES-APOTEX-2019AP009763

PATIENT
  Age: 38 Year
  Sex: Female

DRUGS (16)
  1. DOLANTIN [Suspect]
     Active Substance: MEPERIDINE
     Indication: RENAL PAIN
  2. PARACETAMOL [Suspect]
     Active Substance: ACETAMINOPHEN
     Indication: RENAL COLIC
     Dosage: UNK
     Route: 042
  3. BUSCOPAN [Suspect]
     Active Substance: BUTYLSCOPOLAMINE BROMIDE
     Indication: RENAL PAIN
     Dosage: UNK
     Route: 042
  4. BUSCOPAN [Suspect]
     Active Substance: BUTYLSCOPOLAMINE BROMIDE
     Indication: NEPHRITIC SYNDROME
  5. DICLOFENAC [Suspect]
     Active Substance: DICLOFENAC
     Indication: RENAL COLIC
     Dosage: 50 MG, Q.12H
     Route: 030
  6. DIPYRONE [Concomitant]
     Active Substance: DIPYRONE
     Indication: RENAL PAIN
     Dosage: UNK
     Route: 042
  7. PARACETAMOL [Suspect]
     Active Substance: ACETAMINOPHEN
     Indication: RENAL PAIN
  8. DICLOFENAC [Suspect]
     Active Substance: DICLOFENAC
     Indication: NEPHRITIC SYNDROME
  9. DOLANTIN [Suspect]
     Active Substance: MEPERIDINE
     Indication: NEPHRITIC SYNDROME
     Dosage: UNK
     Route: 065
  10. BUSCOPAN [Suspect]
     Active Substance: BUTYLSCOPOLAMINE BROMIDE
     Indication: RENAL COLIC
     Dosage: UNK
     Route: 065
  11. DIAZEPAM. [Suspect]
     Active Substance: DIAZEPAM
     Indication: NEPHRITIC SYNDROME
  12. PARACETAMOL [Suspect]
     Active Substance: ACETAMINOPHEN
     Indication: NEPHRITIC SYNDROME
     Dosage: UNK
     Route: 065
  13. DIAZEPAM. [Suspect]
     Active Substance: DIAZEPAM
     Indication: RENAL COLIC
     Dosage: UNK
     Route: 042
  14. DOLANTIN [Suspect]
     Active Substance: MEPERIDINE
     Indication: RENAL COLIC
  15. METAMIZOL NORMON [Suspect]
     Active Substance: METAMIZOLE SODIUM
     Indication: RENAL COLIC
     Dosage: UNK
     Route: 065
  16. METAMIZOL NORMON [Suspect]
     Active Substance: METAMIZOLE SODIUM
     Indication: NEPHRITIC SYNDROME
     Dosage: UNK
     Route: 042

REACTIONS (2)
  - Exposure during pregnancy [Unknown]
  - Oligohydramnios [Recovered/Resolved]
